FAERS Safety Report 10514000 (Version 2)
Quarter: 2014Q4

REPORT INFORMATION
  Report Type: Spontaneous
  Country: US (occurrence: US)
  Receive Date: 20141013
  Receipt Date: 20141016
  Transmission Date: 20150528
  Serious: Yes (Other)
  Sender: FDA-Public Use
  Company Number: US-RB-069298-14

PATIENT
  Age: 61 Year
  Sex: Female

DRUGS (1)
  1. DELSYM [Suspect]
     Active Substance: DEXTROMETHORPHAN
     Indication: LOWER RESPIRATORY TRACT INFECTION
     Dosage: TOOK 1 DOSE;CONSUMER LAST USED THE PRODUCT ON 17-SEP-2014
     Route: 065
     Dates: start: 20140917

REACTIONS (3)
  - Loss of consciousness [Recovered/Resolved]
  - Abdominal discomfort [Recovered/Resolved]
  - Dizziness [Recovered/Resolved]

NARRATIVE: CASE EVENT DATE: 20140917
